FAERS Safety Report 19900312 (Version 2)
Quarter: 2021Q4

REPORT INFORMATION
  Report Type: Spontaneous
  Country: SE (occurrence: IN)
  Receive Date: 20210929
  Receipt Date: 20211004
  Transmission Date: 20220304
  Serious: Yes (Congenital Anomaly, Other)
  Sender: FDA-Public Use
  Company Number: SE-SA-SAC20210520001230

PATIENT

DRUGS (4)
  1. TOPIRAMATE [Suspect]
     Active Substance: TOPIRAMATE
     Indication: Product used for unknown indication
     Dosage: DURING 1ST, 2ND AND 3RD TRIMESTER
     Route: 064
  2. PHENOBARBITAL [Suspect]
     Active Substance: PHENOBARBITAL
     Indication: Product used for unknown indication
     Dosage: 60 MILLIGRAM, QD, 60 MG, QD (FIRST TRIMESTER)
     Route: 064
  3. PHENOBARBITAL [Suspect]
     Active Substance: PHENOBARBITAL
     Dosage: SEC AND THIRD TRIMESTER
     Route: 064
  4. VALPROIC ACID [Suspect]
     Active Substance: VALPROIC ACID
     Indication: Product used for unknown indication
     Dosage: DURING 1ST, 2ND AND 3RD TRIMESTER
     Route: 064

REACTIONS (2)
  - Atrial septal defect [Unknown]
  - Foetal exposure during pregnancy [Unknown]
